FAERS Safety Report 5495471-6 (Version None)
Quarter: 2007Q4

REPORT INFORMATION
  Report Type: 
  Country: None (occurrence: None)
  Receive Date: 20071023
  Receipt Date: 20071010
  Transmission Date: 20080405
  Serious: Yes (Other)
  Sender: FDA-Public Use
  Company Number: US021432

PATIENT
  Age: 67 Year
  Sex: Male

DRUGS (1)
  1. PROVIGIL [Suspect]
     Dosage: 200 MG ORAL
     Route: 048
     Dates: start: 20070101, end: 20070101

REACTIONS (1)
  - ANAPHYLACTIC SHOCK [None]
